FAERS Safety Report 10141845 (Version 1)
Quarter: 2014Q2

REPORT INFORMATION
  Report Type: Spontaneous
  Country: US (occurrence: US)
  Receive Date: 20140429
  Receipt Date: 20140429
  Transmission Date: 20141212
  Serious: No
  Sender: FDA-Public Use
  Company Number: US-009507513-1404USA014169

PATIENT
  Age: 73 Year
  Sex: Female

DRUGS (9)
  1. PROVENTIL [Suspect]
     Indication: WHEEZING
     Dosage: HFA, 90 MICROGRAM 2 PUFFS, BID
     Route: 055
     Dates: start: 201310
  2. BENICAR [Concomitant]
  3. BYSTOLIC [Concomitant]
  4. LUMIGAN [Concomitant]
  5. SIMBRINZA [Concomitant]
  6. LYRICA [Concomitant]
  7. IPRATROPIUM BROMIDE [Concomitant]
  8. NEXIUM [Concomitant]
  9. ZANTAC [Concomitant]

REACTIONS (4)
  - Productive cough [Not Recovered/Not Resolved]
  - Wheezing [Not Recovered/Not Resolved]
  - Drug dose omission [Unknown]
  - Product quality issue [Unknown]
